FAERS Safety Report 6217658-7 (Version None)
Quarter: 2009Q2

REPORT INFORMATION
  Report Type: 
  Country: None (occurrence: None)
  Receive Date: 20090608
  Receipt Date: 20090528
  Transmission Date: 20091009
  Serious: Yes (Hospitalization)
  Sender: FDA-Public Use
  Company Number: US-PFIZER INC-2009219073

PATIENT
  Sex: Female
  Weight: 111.11 kg

DRUGS (17)
  1. NAPROXEN [Suspect]
     Indication: OSTEOARTHRITIS
     Dosage: UNK
     Route: 048
     Dates: start: 20071114
  2. BLINDED *PLACEBO [Suspect]
     Indication: OSTEOARTHRITIS
     Dosage: UNK
     Route: 048
     Dates: start: 20071114
  3. BLINDED CELECOXIB [Suspect]
     Indication: OSTEOARTHRITIS
     Dosage: UNK
     Route: 048
     Dates: start: 20071114
  4. IBUPROFEN [Suspect]
     Indication: OSTEOARTHRITIS
     Dosage: UNK
     Route: 048
     Dates: start: 20071114
  5. NAPROXEN [Suspect]
     Dosage: UNK
     Route: 048
     Dates: start: 20071114
  6. NEXIUM [Concomitant]
     Indication: GASTROOESOPHAGEAL REFLUX DISEASE
     Dosage: 40 MG, 1X/DAY
     Route: 048
     Dates: start: 20071128
  7. DARVOCET [Concomitant]
     Dosage: UNK
     Dates: start: 20050603
  8. BENTYL [Concomitant]
     Dosage: UNK
     Dates: start: 20000721
  9. DOXEPIN [Concomitant]
     Dosage: UNK
     Dates: start: 20000101
  10. ALLEGRA [Concomitant]
     Dosage: UNK
     Dates: start: 20020701
  11. FLUOXETINE [Concomitant]
     Dosage: UNK
     Dates: start: 20010108
  12. ZESTRIL [Concomitant]
     Dosage: UNK
     Dates: start: 20000406
  13. PROVIGIL [Concomitant]
     Dosage: UNK
     Dates: start: 20080610
  14. NORFLEX [Concomitant]
     Dosage: UNK
     Dates: start: 20061005
  15. MAXAIR [Concomitant]
     Dosage: UNK
     Dates: start: 20010208
  16. SIMVASTATIN [Concomitant]
     Dosage: UNK
     Dates: start: 20070521
  17. ADVAIR HFA [Concomitant]
     Dosage: UNK
     Dates: start: 20050603

REACTIONS (1)
  - OESOPHAGEAL SPASM [None]
